FAERS Safety Report 21577319 (Version 2)
Quarter: 2022Q4

REPORT INFORMATION
  Report Type: Spontaneous
  Country: FR (occurrence: FR)
  Receive Date: 20221110
  Receipt Date: 20221125
  Transmission Date: 20230112
  Serious: Yes (Other)
  Sender: FDA-Public Use
  Company Number: FR-SA-2022SA458630

PATIENT
  Age: 55 Year
  Sex: Male

DRUGS (2)
  1. DUPILUMAB [Suspect]
     Active Substance: DUPILUMAB
     Indication: Dermatitis atopic
     Dosage: 600 MG, 1X
     Route: 058
     Dates: start: 20191217, end: 20191217
  2. DUPILUMAB [Suspect]
     Active Substance: DUPILUMAB
     Dosage: 300 MG, QOW
     Route: 058
     Dates: start: 201912, end: 20201117

REACTIONS (14)
  - Anaplastic large cell lymphoma T- and null-cell types [Recovered/Resolved]
  - Lymphocytic infiltration [Recovered/Resolved]
  - Skin lesion [Recovered/Resolved]
  - Nodule [Recovered/Resolved]
  - Skin mass [Recovered/Resolved]
  - Erythema [Recovered/Resolved]
  - Skin ulcer [Recovered/Resolved]
  - Pain [Recovered/Resolved]
  - Dry gangrene [Recovered/Resolved]
  - Cutaneous T-cell lymphoma [Recovered/Resolved]
  - Superinfection [Unknown]
  - Dermatitis atopic [Recovered/Resolved]
  - Rebound effect [Recovered/Resolved]
  - Neoplasm [Unknown]

NARRATIVE: CASE EVENT DATE: 20190101
